FAERS Safety Report 8158895-4 (Version None)
Quarter: 2012Q1

REPORT INFORMATION
  Report Type: 
  Country: None (occurrence: None)
  Receive Date: 20120217
  Receipt Date: 20120208
  Transmission Date: 20120608
  Serious: No
  Sender: FDA-Public Use
  Company Number: 1022556-2012-00010

PATIENT
  Sex: Female

DRUGS (1)
  1. ACT TOTAL CARE DRY MOUTH RINSE 18 OZ [Suspect]
     Indication: DRY MOUTH
     Dosage: ORAL RINSE
     Route: 048

REACTIONS (2)
  - CONTUSION [None]
  - SWELLING FACE [None]
